FAERS Safety Report 26213566 (Version 1)
Quarter: 2025Q4

REPORT INFORMATION
  Report Type: Spontaneous
  Country: GB (occurrence: GB)
  Receive Date: 20251230
  Receipt Date: 20251230
  Transmission Date: 20260117
  Serious: Yes (Life-Threatening, Other)
  Sender: PFIZER
  Company Number: GB-PFIZER INC-PV202500150186

PATIENT
  Age: 80 Year
  Sex: Male

DRUGS (3)
  1. METHYLPREDNISOLONE SODIUM SUCCINATE [Suspect]
     Active Substance: METHYLPREDNISOLONE SODIUM SUCCINATE
     Indication: Myocarditis-myositis-myasthenia gravis overlap syndrome
     Dosage: UNK
     Route: 042
  2. NEOSTIGMINE [Suspect]
     Active Substance: NEOSTIGMINE
     Indication: Myocarditis-myositis-myasthenia gravis overlap syndrome
     Dosage: 2.5 MG, 3X/DAY
     Route: 030
  3. HUMAN IMMUNOGLOBULIN G [Suspect]
     Active Substance: HUMAN IMMUNOGLOBULIN G
     Indication: Myocarditis-myositis-myasthenia gravis overlap syndrome
     Dosage: UNK
     Route: 042

REACTIONS (2)
  - Drug ineffective for unapproved indication [Unknown]
  - Off label use [Unknown]
